FAERS Safety Report 8989958 (Version 1)
Quarter: 2012Q4

REPORT INFORMATION
  Report Type: 
  Country: ES (occurrence: ES)
  Receive Date: 20121228
  Receipt Date: 20121228
  Transmission Date: 20130627
  Serious: Yes (Hospitalization)
  Sender: FDA-Public Use
  Company Number: ES-TEVA-377292ISR

PATIENT
  Age: 48 Year
  Sex: Female

DRUGS (2)
  1. PACLITAXEL [Suspect]
     Indication: BREAST CANCER
     Dosage: Dose 80mg/m 2.8 cycles
     Route: 042
     Dates: start: 20110801, end: 20110912
  2. HERCEPTIN [Suspect]
     Indication: BREAST CANCER
     Route: 042
     Dates: start: 20110801, end: 20110912

REACTIONS (2)
  - Pneumonitis [Unknown]
  - Cardiac failure [Unknown]
